FAERS Safety Report 7256628-7 (Version None)
Quarter: 2011Q1

REPORT INFORMATION
  Report Type: 
  Country: None (occurrence: None)
  Receive Date: 20110129
  Receipt Date: 20100629
  Transmission Date: 20110831
  Serious: No
  Sender: FDA-Public Use
  Company Number: US-ABBOTT-10P-163-0654965-00

PATIENT
  Sex: Male

DRUGS (3)
  1. HUMIRA [Suspect]
     Route: 058
  2. XANAX [Suspect]
  3. HUMIRA [Suspect]
     Route: 058

REACTIONS (1)
  - VISION BLURRED [None]
